FAERS Safety Report 15664313 (Version 1)
Quarter: 2018Q4

REPORT INFORMATION
  Report Type: Spontaneous
  Country: US (occurrence: US)
  Receive Date: 20181116
  Receipt Date: 20181116
  Transmission Date: 20190205
  Serious: Yes (Death)
  Sender: FDA-Public Use
  Company Number: None

PATIENT

DRUGS (1)
  1. YESCARTA [Suspect]
     Active Substance: AXICABTAGENE CILOLEUCEL
     Dates: start: 20181004

REACTIONS (9)
  - Metastases to meninges [None]
  - Tremor [None]
  - Systemic candida [None]
  - Renal tubular necrosis [None]
  - Hypotension [None]
  - Chorioretinal disorder [None]
  - Candida infection [None]
  - Respiratory distress [None]
  - Septic embolus [None]
